FAERS Safety Report 10195402 (Version 2)
Quarter: 2014Q2

REPORT INFORMATION
  Report Type: Spontaneous
  Country: RO (occurrence: RO)
  Receive Date: 20140526
  Receipt Date: 20140625
  Transmission Date: 20141212
  Serious: Yes (Hospitalization)
  Sender: FDA-Public Use
  Company Number: RO-ABBVIE-14P-135-1239177-00

PATIENT
  Age: 54 Year
  Sex: Female
  Weight: 62 kg

DRUGS (4)
  1. HUMIRA [Suspect]
     Indication: RHEUMATOID ARTHRITIS
     Route: 058
     Dates: start: 201307, end: 20140401
  2. LEFLUNOMID [Concomitant]
     Indication: RHEUMATOID ARTHRITIS
     Route: 048
     Dates: start: 201002, end: 20140408
  3. PLAQUENIL [Concomitant]
     Indication: RHEUMATOID ARTHRITIS
     Route: 048
     Dates: start: 20140408
  4. MEDROL [Concomitant]
     Indication: RHEUMATOID ARTHRITIS
     Route: 048
     Dates: start: 20140408

REACTIONS (5)
  - Lymphadenopathy [Unknown]
  - Photosensitivity reaction [Unknown]
  - Lupus-like syndrome [Recovering/Resolving]
  - Nasopharyngitis [Unknown]
  - Double stranded DNA antibody positive [Unknown]
